FAERS Safety Report 17451314 (Version 1)
Quarter: 2020Q1

REPORT INFORMATION
  Report Type: Spontaneous
  Country: US (occurrence: US)
  Receive Date: 20200211
  Receipt Date: 20200211
  Transmission Date: 20200409
  Serious: No
  Sender: FDA-Public Use
  Company Number: None

PATIENT
  Age: 40 Year
  Sex: Male

DRUGS (2)
  1. MEKINIST [Concomitant]
     Active Substance: TRAMETINIB DIMETHYL SULFOXIDE
  2. ERLOTINIB TAB 25MG [Suspect]
     Active Substance: ERLOTINIB
     Indication: RECTAL CANCER
     Route: 048
     Dates: start: 20200211

REACTIONS (1)
  - Off label use [None]

NARRATIVE: CASE EVENT DATE: 20200211
